FAERS Safety Report 5973906-X (Version None)
Quarter: 2008Q4

REPORT INFORMATION
  Report Type: 
  Country: None (occurrence: None)
  Receive Date: 20081124
  Receipt Date: 20081110
  Transmission Date: 20090506
  Serious: Yes (Hospitalization)
  Sender: FDA-Public Use
  Company Number: 1000001752

PATIENT
  Age: 49 Year
  Sex: Female

DRUGS (3)
  1. CITALOPRAM HYDROBROMIDE [Suspect]
     Dosage: 20 MG (20 MG, 1 IN 1 D), ORAL
     Route: 048
     Dates: start: 20070320, end: 20070322
  2. CITALOPRAM HYDROBROMIDE [Suspect]
     Dosage: 10 MG (10 MG,1 IN 1 D), ORAL
     Route: 048
     Dates: start: 20070315, end: 20070319
  3. PROMETHAZINE [Suspect]
     Dosage: 100 MG (100 MG,1 IN 1 D), ORAL
     Route: 048
     Dates: start: 20070315, end: 20070320

REACTIONS (2)
  - DERMATITIS ALLERGIC [None]
  - PLATELET COUNT DECREASED [None]
